FAERS Safety Report 17852150 (Version 2)
Quarter: 2020Q2

REPORT INFORMATION
  Report Type: Spontaneous
  Country: US (occurrence: US)
  Receive Date: 20200602
  Receipt Date: 20200620
  Transmission Date: 20200714
  Serious: Yes (Life-Threatening, Hospitalization)
  Sender: FDA-Public Use
  Company Number: US-TEVA-2020-US-1242236

PATIENT
  Age: 36 Year
  Sex: Female

DRUGS (3)
  1. ALPRAZOLAM. [Suspect]
     Active Substance: ALPRAZOLAM
     Route: 048
  2. ZOLPIDEM [Suspect]
     Active Substance: ZOLPIDEM TARTRATE
     Route: 048
  3. KRATOM [Suspect]
     Active Substance: HERBALS\MITRAGYNINE
     Route: 048

REACTIONS (6)
  - Toxicity to various agents [Recovered/Resolved]
  - Acute hepatic failure [Recovered/Resolved]
  - Coagulopathy [Recovered/Resolved]
  - Acute kidney injury [Recovered/Resolved]
  - Drug withdrawal syndrome [Recovered/Resolved]
  - Intentional overdose [Unknown]
